FAERS Safety Report 7093383-8 (Version None)
Quarter: 2010Q4

REPORT INFORMATION
  Report Type: 
  Country: None (occurrence: None)
  Receive Date: 20101110
  Receipt Date: 20101027
  Transmission Date: 20110411
  Serious: Yes (Hospitalization, Other)
  Sender: FDA-Public Use
  Company Number: PHHY2010US68317

PATIENT
  Age: 93 Year
  Sex: Female

DRUGS (10)
  1. DIOVAN [Suspect]
     Indication: HYPERTENSION
     Dosage: 160 MG, BID
     Dates: start: 20090923
  2. DIOVAN [Suspect]
     Dosage: TWICE DAILY
  3. METOPROLOL [Suspect]
     Indication: HYPERTENSION
     Dosage: 25 MG, BID
     Dates: start: 20080902
  4. METOPROLOL [Suspect]
     Indication: CORONARY ARTERY DISEASE
  5. EYE DROPS [Suspect]
  6. PLAVIX [Concomitant]
     Indication: CORONARY ARTERY DISEASE
     Dosage: 75 MG, UNK
     Dates: start: 20101011
  7. NORVASC [Concomitant]
     Indication: HYPERTENSION
     Dosage: 5 MG, PRN
     Dates: start: 20100817
  8. LORTAB [Concomitant]
     Indication: PAIN
     Dosage: 2-3 DAILY
     Dates: start: 20100527
  9. INDAPAMIDE [Concomitant]
     Dosage: 1.25 MG, PRN
     Dates: start: 20100511
  10. CATAPRES-TTS-1 [Concomitant]
     Indication: HYPERTENSION
     Dosage: 0.1 MG PATCH WEEKLY
     Dates: start: 20101011

REACTIONS (4)
  - COUGH [None]
  - EMBOLIC STROKE [None]
  - GLAUCOMA [None]
  - MUSCULAR WEAKNESS [None]
